FAERS Safety Report 23633743 (Version 1)
Quarter: 2024Q1

REPORT INFORMATION
  Report Type: Spontaneous
  Country: MX (occurrence: None)
  Receive Date: 20240314
  Receipt Date: 20240314
  Transmission Date: 20240409
  Serious: Yes (Other)
  Sender: FDA-Public Use
  Company Number: 2024A058451

PATIENT
  Age: 11273 Day
  Sex: Female
  Weight: 50 kg

DRUGS (1)
  1. FASLODEX [Suspect]
     Active Substance: FULVESTRANT
     Indication: Ovarian cancer
     Dosage: 500 MG, ON DAY ONE OF TREATMENT, 250 MG ON DAY 15 OF TREATMENT, 250 MG ON DAY 29 OF TREATMENT, CO...
     Route: 030
     Dates: start: 20231001

REACTIONS (5)
  - Metastatic neoplasm [Unknown]
  - Rectal cancer [Unknown]
  - Acne [Unknown]
  - Rash [Unknown]
  - Off label use [Unknown]

NARRATIVE: CASE EVENT DATE: 20231001
